FAERS Safety Report 21615215 (Version 3)
Quarter: 2023Q1

REPORT INFORMATION
  Report Type: Spontaneous
  Country: JP (occurrence: JP)
  Receive Date: 20221118
  Receipt Date: 20230127
  Transmission Date: 20230418
  Serious: Yes (Disabling, Other)
  Sender: FDA-Public Use
  Company Number: JP-UNITED THERAPEUTICS-UNT-2022-028088

PATIENT
  Age: 8 Year
  Sex: Male

DRUGS (13)
  1. UNITUXIN [Suspect]
     Active Substance: DINUTUXIMAB
     Indication: Neuroblastoma
     Dosage: 12 ?G, CYCLICAL (CYCLE 1)
     Route: 041
     Dates: start: 20150119, end: 20150122
  2. UNITUXIN [Suspect]
     Active Substance: DINUTUXIMAB
     Dosage: 12 ?G, CYCLICAL (CYCLE 2)
     Route: 041
     Dates: start: 20150216, end: 20150219
  3. UNITUXIN [Suspect]
     Active Substance: DINUTUXIMAB
     Dosage: 10 ?G, CYCLICAL (CYCLE 3)
     Route: 041
     Dates: start: 20150316, end: 20150319
  4. UNITUXIN [Suspect]
     Active Substance: DINUTUXIMAB
     Dosage: 12 ?G, CYCLICAL (CYCLE 4)
     Route: 041
     Dates: start: 20150406, end: 20150409
  5. UNITUXIN [Suspect]
     Active Substance: DINUTUXIMAB
     Dosage: 10 ?G, CYCLICAL (CYCLE 5)
     Route: 041
     Dates: start: 20150427, end: 20150430
  6. IOBENGUANE I-131 [Suspect]
     Active Substance: IOBENGUANE I-131
     Indication: Product used for unknown indication
     Dosage: UNK
     Route: 065
  7. FILGRASTIM [Concomitant]
     Active Substance: FILGRASTIM
     Indication: Product used for unknown indication
     Dosage: 92 ?G, PER DAY
     Route: 065
     Dates: start: 20150116, end: 20150129
  8. FILGRASTIM [Concomitant]
     Active Substance: FILGRASTIM
     Dosage: 37 ?G, PER DAY
     Route: 065
     Dates: start: 20150306, end: 20150319
  9. FILGRASTIM [Concomitant]
     Active Substance: FILGRASTIM
     Dosage: 37 ?G, PER DAY
     Route: 065
     Dates: start: 20150424, end: 20150507
  10. TECELEUKIN [Concomitant]
     Active Substance: TECELEUKIN
     Indication: Product used for unknown indication
     Dosage: UNK
     Route: 065
     Dates: start: 20150209, end: 20150212
  11. TECELEUKIN [Concomitant]
     Active Substance: TECELEUKIN
     Dosage: UNK
     Route: 065
     Dates: start: 20150216, end: 20150219
  12. TECELEUKIN [Concomitant]
     Active Substance: TECELEUKIN
     Dosage: UNK
     Route: 065
     Dates: start: 20150330, end: 20150412
  13. TECELEUKIN [Concomitant]
     Active Substance: TECELEUKIN
     Dosage: UNK
     Route: 065
     Dates: start: 20150406, end: 20150409

REACTIONS (2)
  - Optic atrophy [Not Recovered/Not Resolved]
  - Hemianopia homonymous [Not Recovered/Not Resolved]

NARRATIVE: CASE EVENT DATE: 20191009
